FAERS Safety Report 24980877 (Version 1)
Quarter: 2025Q1

REPORT INFORMATION
  Report Type: Spontaneous
  Country: US (occurrence: US)
  Receive Date: 20250218
  Receipt Date: 20250218
  Transmission Date: 20250409
  Serious: Yes (Life-Threatening, Other)
  Sender: PFIZER
  Company Number: US-PFIZER INC-PV202500017213

PATIENT
  Age: 25 Year
  Sex: Female

DRUGS (4)
  1. MISOPROSTOL [Suspect]
     Active Substance: MISOPROSTOL
     Indication: Uterine atony
     Route: 054
  2. METHERGINE [Concomitant]
     Active Substance: METHYLERGONOVINE MALEATE
     Indication: Uterine atony
     Route: 030
  3. OXYTOCIN [Concomitant]
     Active Substance: OXYTOCIN
     Indication: Uterine atony
     Route: 030
  4. OXYTOCIN [Concomitant]
     Active Substance: OXYTOCIN
     Route: 042

REACTIONS (2)
  - Pyrexia [Recovered/Resolved]
  - Off label use [Unknown]
